FAERS Safety Report 6157213-0 (Version None)
Quarter: 2009Q2

REPORT INFORMATION
  Report Type: 
  Country: None (occurrence: None)
  Receive Date: 20090416
  Receipt Date: 20090413
  Transmission Date: 20091009
  Serious: Yes (Other)
  Sender: FDA-Public Use
  Company Number: US-MERCK-0904USA01897

PATIENT
  Age: 6 Year
  Sex: Female

DRUGS (2)
  1. SINGULAIR [Suspect]
     Indication: ASTHMA
     Route: 048
     Dates: start: 20071201, end: 20080301
  2. MAXAIR [Concomitant]
     Route: 065

REACTIONS (4)
  - ANXIETY [None]
  - DEPRESSION [None]
  - PARANOIA [None]
  - SUICIDAL IDEATION [None]
